FAERS Safety Report 24288422 (Version 1)
Quarter: 2024Q3

REPORT INFORMATION
  Report Type: Report from Study
  Country: US (occurrence: US)
  Receive Date: 20240906
  Receipt Date: 20240906
  Transmission Date: 20241016
  Serious: Yes (Hospitalization, Other)
  Sender: ABBVIE
  Company Number: US-ABBVIE-5868780

PATIENT
  Sex: Male

DRUGS (1)
  1. IMBRUVICA [Suspect]
     Active Substance: IBRUTINIB
     Indication: Chronic lymphocytic leukaemia
     Route: 048
     Dates: start: 201804

REACTIONS (6)
  - General physical health deterioration [Unknown]
  - Dyskinesia [Unknown]
  - Renal disorder [Unknown]
  - Prostatomegaly [Unknown]
  - Dysuria [Unknown]
  - Fall [Unknown]
